FAERS Safety Report 9287707 (Version 1)
Quarter: 2013Q2

REPORT INFORMATION
  Report Type: Spontaneous
  Country: US (occurrence: US)
  Receive Date: 20130514
  Receipt Date: 20130514
  Transmission Date: 20140414
  Serious: Yes (Other)
  Sender: FDA-Public Use
  Company Number: US-BAYER-2013-057536

PATIENT
  Age: 43 Year
  Sex: Female

DRUGS (2)
  1. YAZ [Suspect]
     Dosage: UNK
     Route: 048
     Dates: start: 201301, end: 201303
  2. YASMIN [Suspect]
     Dosage: UNK
     Route: 048
     Dates: start: 201304, end: 201304

REACTIONS (2)
  - Vaginal haemorrhage [None]
  - Menorrhagia [None]
